FAERS Safety Report 5153761-0 (Version None)
Quarter: 2006Q4

REPORT INFORMATION
  Report Type: 
  Country: None (occurrence: None)
  Receive Date: 20061120
  Receipt Date: 20060809
  Transmission Date: 20070319
  Serious: Yes (Hospitalization)
  Sender: FDA-Public Use
  Company Number: FR-SP-E2006-04062

PATIENT
  Age: 23 Year
  Sex: Female

DRUGS (2)
  1. TUBERTEST [Suspect]
     Indication: TUBERCULIN TEST
     Route: 065
     Dates: start: 20060807
  2. TUBERTEST [Suspect]
     Route: 065
     Dates: start: 20060807

REACTIONS (5)
  - BACK PAIN [None]
  - FATIGUE [None]
  - INJECTION SITE INDURATION [None]
  - MUSCULOSKELETAL PAIN [None]
  - VIRAL INFECTION [None]
